FAERS Safety Report 5541532-2 (Version None)
Quarter: 2007Q4

REPORT INFORMATION
  Report Type: 
  Country: None (occurrence: None)
  Receive Date: 20071210
  Receipt Date: 20071130
  Transmission Date: 20080405
  Serious: Yes (Hospitalization)
  Sender: FDA-Public Use
  Company Number: PHBS2007JP17345

PATIENT
  Age: 83 Year
  Sex: Female

DRUGS (7)
  1. TEGRETOL [Suspect]
     Indication: TRIGEMINAL NEURALGIA
     Dosage: 300 MG/DAY
     Route: 048
     Dates: start: 20070831
  2. TEGRETOL [Suspect]
     Dosage: 600 MG/DAY
     Route: 048
     Dates: end: 20070912
  3. MICARDIS [Concomitant]
     Dosage: 40 MG/DAY
     Route: 065
  4. ARTIST [Concomitant]
     Dosage: 10 MG/DAY
     Route: 065
  5. NORVASC [Concomitant]
     Dosage: 5 MG/DAY
     Route: 065
  6. ETIZOLAM [Concomitant]
  7. LORAZEPAM [Concomitant]

REACTIONS (4)
  - BLOOD PRESSURE INCREASED [None]
  - FALL [None]
  - NAUSEA [None]
  - WOUND [None]
